FAERS Safety Report 15767365 (Version 4)
Quarter: 2019Q1

REPORT INFORMATION
  Report Type: Spontaneous
  Country: US (occurrence: US)
  Receive Date: 20181227
  Receipt Date: 20190131
  Transmission Date: 20190417
  Serious: Yes (Other)
  Sender: FDA-Public Use
  Company Number: US-ACTELION-A-NJ2018-182654

PATIENT
  Age: 78 Year
  Sex: Female
  Weight: 60.32 kg

DRUGS (6)
  1. SILDENAFIL CITRATE. [Concomitant]
     Active Substance: SILDENAFIL CITRATE
  2. UPTRAVI [Suspect]
     Active Substance: SELEXIPAG
     Dosage: 200 MCG, BID
     Route: 048
     Dates: end: 20190103
  3. UPTRAVI [Suspect]
     Active Substance: SELEXIPAG
     Indication: PULMONARY ARTERIAL HYPERTENSION
     Dosage: 800 MCG, BID
     Route: 048
  4. UPTRAVI [Suspect]
     Active Substance: SELEXIPAG
     Dosage: 600 MCG, BID
     Route: 048
  5. UPTRAVI [Suspect]
     Active Substance: SELEXIPAG
     Dosage: 400 MCG, BID
     Route: 048
  6. UPTRAVI [Suspect]
     Active Substance: SELEXIPAG
     Dosage: 1000 MCG, BID
     Route: 048

REACTIONS (16)
  - Dysphagia [Recovering/Resolving]
  - Headache [Recovering/Resolving]
  - Pain in jaw [Unknown]
  - Nausea [Recovered/Resolved]
  - Back pain [Unknown]
  - Neck pain [Unknown]
  - Gingival pain [Recovering/Resolving]
  - Splenomegaly [Unknown]
  - Vomiting [Recovered/Resolved]
  - Diarrhoea [Recovered/Resolved]
  - Myelofibrosis [Unknown]
  - Oropharyngeal pain [Recovering/Resolving]
  - Swollen tongue [Recovered/Resolved]
  - Swelling [Recovered/Resolved]
  - Hepatomegaly [Recovered/Resolved]
  - Hypersensitivity [Recovered/Resolved]

NARRATIVE: CASE EVENT DATE: 20181117
